FAERS Safety Report 4506488-X (Version None)
Quarter: 2004Q4

REPORT INFORMATION
  Report Type: 
  Country: None (occurrence: None)
  Receive Date: 20041122
  Receipt Date: 20041026
  Transmission Date: 20050328
  Serious: Yes (Other)
  Sender: FDA-Public Use
  Company Number: JP-ABBOTT-04P-087-0278870-00

PATIENT
  Sex: Female
  Weight: 56 kg

DRUGS (8)
  1. SEVOFLURANE [Suspect]
     Indication: ANAESTHESIA
     Dosage: 0.5-1.7%
     Route: 055
     Dates: start: 20040621, end: 20040621
  2. VALPROATE SODIUM [Interacting]
     Indication: EPILEPSY
     Route: 048
  3. CARBAMAZEPINE [Concomitant]
     Indication: EPILEPSY
     Route: 048
  4. CLOBAZAM [Concomitant]
     Indication: EPILEPSY
     Route: 048
  5. ZONISAMIDE [Concomitant]
     Indication: EPILEPSY
     Route: 048
  6. THIAMYLAL [Concomitant]
     Indication: ANAESTHESIA
     Route: 042
  7. FENTANYL [Concomitant]
     Indication: ANAESTHESIA
     Route: 042
  8. VECURONIUM BROMIDE [Concomitant]
     Indication: ANAESTHESIA
     Route: 042
     Dates: start: 20040621, end: 20040621

REACTIONS (4)
  - DELAYED RECOVERY FROM ANAESTHESIA [None]
  - DRUG INTERACTION [None]
  - GRIP STRENGTH DECREASED [None]
  - SOMNOLENCE [None]
